FAERS Safety Report 6209045-2 (Version None)
Quarter: 2009Q2

REPORT INFORMATION
  Report Type: 
  Country: None (occurrence: None)
  Receive Date: 20090529
  Receipt Date: 20090522
  Transmission Date: 20091009
  Serious: Yes (Hospitalization)
  Sender: FDA-Public Use
  Company Number: US-BIOGENIDEC-2008BI006796

PATIENT
  Age: 63 Year
  Sex: Female

DRUGS (14)
  1. TYSABRI [Suspect]
     Indication: MULTIPLE SCLEROSIS
     Route: 042
     Dates: start: 20060928, end: 20080103
  2. TYSABRI [Suspect]
     Route: 042
     Dates: start: 20081029
  3. LYRICA [Concomitant]
     Indication: PAIN IN EXTREMITY
     Route: 048
     Dates: start: 20080908
  4. NEXIUM [Concomitant]
     Indication: GASTROOESOPHAGEAL REFLUX DISEASE
     Route: 048
     Dates: start: 20080908
  5. RELPAX [Concomitant]
     Indication: MULTIPLE SCLEROSIS
     Route: 048
     Dates: start: 20080908
  6. FLECTOR [Concomitant]
     Indication: DRUG USE FOR UNKNOWN INDICATION
     Dates: start: 20080908
  7. BONIVA [Concomitant]
     Indication: OSTEOPOROSIS
     Route: 048
     Dates: start: 20080908
  8. URISEPTIC [Concomitant]
     Indication: NEUROGENIC BLADDER
     Route: 048
     Dates: start: 20080908
  9. LIPITOR [Concomitant]
     Indication: HYPERCHOLESTEROLAEMIA
     Route: 048
     Dates: start: 20080908
  10. CELEBREX [Concomitant]
     Indication: OSTEOARTHRITIS
     Route: 048
     Dates: start: 20080908
  11. LUNESTA [Concomitant]
     Indication: INSOMNIA
     Route: 048
     Dates: start: 20080908
  12. KLONOPIN [Concomitant]
     Indication: HEADACHE
     Route: 048
     Dates: start: 20080908
  13. NEURONTIN [Concomitant]
     Indication: PAIN IN EXTREMITY
     Route: 048
     Dates: start: 20080908
  14. BACLOFEN [Concomitant]
     Indication: NEUROGENIC BLADDER
     Route: 048
     Dates: start: 20080908

REACTIONS (12)
  - BRONCHITIS [None]
  - CHEST DISCOMFORT [None]
  - CHEST PAIN [None]
  - HYPERTENSION [None]
  - INFECTION [None]
  - MASTOIDITIS [None]
  - MULTIPLE SCLEROSIS [None]
  - MUSCULOSKELETAL PAIN [None]
  - NECK PAIN [None]
  - PAIN IN EXTREMITY [None]
  - STAPHYLOCOCCAL INFECTION [None]
  - URINARY TRACT INFECTION [None]
